FAERS Safety Report 9115210 (Version 1)
Quarter: 2013Q1

REPORT INFORMATION
  Report Type: Spontaneous
  Country: US (occurrence: None)
  Receive Date: 20130220
  Receipt Date: 20130220
  Transmission Date: 20140127
  Serious: No
  Sender: FDA-Public Use
  Company Number: None

PATIENT
  Sex: Female
  Weight: 56.52 kg

DRUGS (1)
  1. ALFA 2 INTERFERON 2B (INTRON-A) [Suspect]
     Dates: end: 20120203

REACTIONS (4)
  - Influenza like illness [None]
  - Aspartate aminotransferase increased [None]
  - Neutrophil count decreased [None]
  - White blood cell count decreased [None]
